FAERS Safety Report 23792582 (Version 1)
Quarter: 2024Q2

REPORT INFORMATION
  Report Type: Spontaneous
  Country: IT (occurrence: IT)
  Receive Date: 20240429
  Receipt Date: 20240429
  Transmission Date: 20240716
  Serious: Yes (Other)
  Sender: FDA-Public Use
  Company Number: None

PATIENT
  Age: 56 Year
  Sex: Female

DRUGS (1)
  1. PACLITAXEL [Suspect]
     Active Substance: PACLITAXEL
     Indication: Product used for unknown indication
     Dosage: 04/03/24 (1ST CYCLE): LOT 23A18KB SC. 01/31/25?11/03/24 (2ND CYCLE) AND 18/03/24 (3RD CYCLE): LOT...
     Route: 042
     Dates: start: 20240304, end: 20240318

REACTIONS (3)
  - Anaemia [Recovering/Resolving]
  - Skin toxicity [Recovering/Resolving]
  - Vomiting [Recovered/Resolved]

NARRATIVE: CASE EVENT DATE: 20240304
